FAERS Safety Report 4341888-2 (Version None)
Quarter: 2004Q2

REPORT INFORMATION
  Report Type: 
  Country: None (occurrence: None)
  Receive Date: 20040415
  Receipt Date: 20040329
  Transmission Date: 20050107
  Serious: Yes (Hospitalization, Other)
  Sender: FDA-Public Use
  Company Number: US_0404101964

PATIENT
  Age: 50 Year
  Sex: Male

DRUGS (2)
  1. REGULAR INSULIN [Suspect]
     Indication: DIABETES MELLITUS
  2. LENTE ILETIN II (PORK) [Suspect]
     Indication: DIABETES MELLITUS

REACTIONS (4)
  - EYE OPERATION [None]
  - HYPERTENSION [None]
  - PANCREAS TRANSPLANT [None]
  - RENAL TRANSPLANT [None]
